FAERS Safety Report 11702326 (Version 1)
Quarter: 2015Q4

REPORT INFORMATION
  Report Type: Spontaneous
  Country: US (occurrence: US)
  Receive Date: 20151105
  Receipt Date: 20151105
  Transmission Date: 20160304
  Serious: Yes (Other)
  Sender: FDA-Public Use
  Company Number: US-CELGENEUS-USA-2015106857

PATIENT
  Sex: Female

DRUGS (2)
  1. POMALYST [Suspect]
     Active Substance: POMALIDOMIDE
     Indication: PLASMA CELL MYELOMA
     Dosage: 4 MILLIGRAM
     Route: 048
     Dates: start: 20150612
  2. PAXIL [Suspect]
     Active Substance: PAROXETINE HYDROCHLORIDE
     Indication: HOT FLUSH
     Route: 065
     Dates: start: 2015

REACTIONS (4)
  - Drug ineffective [Unknown]
  - Hepatic enzyme increased [Unknown]
  - Nausea [Unknown]
  - Hot flush [Unknown]

NARRATIVE: CASE EVENT DATE: 2015
